FAERS Safety Report 7559730-5 (Version None)
Quarter: 2011Q2

REPORT INFORMATION
  Report Type: 
  Country: None (occurrence: None)
  Receive Date: 20110621
  Receipt Date: 20110608
  Transmission Date: 20111010
  Serious: Yes (Other)
  Sender: FDA-Public Use
  Company Number: CA-ROCHE-781876

PATIENT
  Age: 70 Year
  Sex: Female

DRUGS (2)
  1. PAMIDRONATE DISODIUM [Suspect]
     Dosage: DRUG NAME REPORTED AS PAMIDRONATE DISODIUM FOR INJECTION
     Route: 042
  2. XELODA [Suspect]
     Route: 065

REACTIONS (8)
  - BONE DISORDER [None]
  - JAW DISORDER [None]
  - MUCOSAL INFLAMMATION [None]
  - LOCALISED INFECTION [None]
  - OSTEONECROSIS OF JAW [None]
  - BUCCAL MUCOSAL ROUGHENING [None]
  - ORAL SURGERY [None]
  - SWELLING FACE [None]
